FAERS Safety Report 18068108 (Version 8)
Quarter: 2020Q3

REPORT INFORMATION
  Report Type: Report from Study
  Country: KR (occurrence: KR)
  Receive Date: 20200724
  Receipt Date: 20200911
  Transmission Date: 20201103
  Serious: Yes (Hospitalization)
  Sender: FDA-Public Use
  Company Number: KR-EISAI MEDICAL RESEARCH-EC-2020-077970

PATIENT
  Age: 60 Year
  Sex: Female
  Weight: 53.5 kg

DRUGS (18)
  1. SMOFLIPID [Concomitant]
     Active Substance: FISH OIL\MEDIUM-CHAIN TRIGLYCERIDES\OLIVE OIL\SOYBEAN OIL
     Route: 042
     Dates: start: 20200701, end: 20200701
  2. CJ PLASMA SOLUTION A [Concomitant]
     Route: 042
     Dates: start: 20200706, end: 20200706
  3. LENVATINIB [Suspect]
     Active Substance: LENVATINIB
     Indication: MALIGNANT MELANOMA STAGE IV
  4. PEMBROLIZUMAB. [Suspect]
     Active Substance: PEMBROLIZUMAB
     Indication: MALIGNANT MELANOMA STAGE IV
     Route: 041
     Dates: start: 20200617, end: 20200617
  5. ROVETIN [Concomitant]
     Dates: start: 201905, end: 20200729
  6. PSEUDAFED [Concomitant]
     Dates: start: 20200622, end: 20200623
  7. MVH [Concomitant]
     Active Substance: VITAMINS
     Route: 042
     Dates: start: 20200701, end: 20200701
  8. IRCODON [Concomitant]
     Active Substance: OXYCODONE HYDROCHLORIDE
     Dates: start: 20200701, end: 20200706
  9. NEBILET [Concomitant]
     Active Substance: NEBIVOLOL
     Dates: start: 201905
  10. LENVATINIB [Suspect]
     Active Substance: LENVATINIB
     Indication: MALIGNANT MELANOMA STAGE III
     Route: 048
     Dates: start: 20200527, end: 20200719
  11. AMOSARTAN [Concomitant]
     Dates: start: 201905, end: 20200729
  12. ACEPECT [Concomitant]
     Dates: start: 20200622, end: 20200623
  13. FAMOTIDINE. [Concomitant]
     Active Substance: FAMOTIDINE
     Dates: start: 20200622, end: 20200623
  14. TRASPEN [Concomitant]
     Dates: start: 20200617, end: 20200630
  15. PEMBROLIZUMAB. [Suspect]
     Active Substance: PEMBROLIZUMAB
     Indication: MALIGNANT MELANOMA STAGE III
     Route: 041
     Dates: start: 20200527, end: 20200527
  16. PEMBROLIZUMAB. [Suspect]
     Active Substance: PEMBROLIZUMAB
     Route: 041
     Dates: start: 20200716, end: 20200716
  17. PHENIRAMINE [Concomitant]
     Active Substance: PHENIRAMINE
     Dates: start: 20200622, end: 20200623
  18. TACOPEN [Concomitant]
     Dates: start: 20200701, end: 20200706

REACTIONS (2)
  - Pyrexia [Recovered/Resolved]
  - Immune-mediated hepatitis [Recovered/Resolved]

NARRATIVE: CASE EVENT DATE: 20200706
